FAERS Safety Report 6396018-2 (Version None)
Quarter: 2009Q4

REPORT INFORMATION
  Report Type: 
  Country: None (occurrence: None)
  Receive Date: 20091009
  Receipt Date: 20091001
  Transmission Date: 20100525
  Serious: Yes (Hospitalization, Other)
  Sender: FDA-Public Use
  Company Number: BR-ABBOTT-08P-020-0479022-00

PATIENT
  Sex: Female
  Weight: 54 kg

DRUGS (6)
  1. HUMIRA [Suspect]
     Indication: RHEUMATOID ARTHRITIS
     Route: 058
     Dates: start: 20080325
  2. ACETAMINOPHEN [Concomitant]
     Indication: PAIN
     Route: 048
  3. DAONIL [Concomitant]
     Indication: DIABETES MELLITUS
     Route: 048
  4. ENALAPRIL MALEATE [Concomitant]
     Indication: BLOOD PRESSURE
     Route: 048
  5. PLAGREL [Concomitant]
     Indication: CARDIAC DISORDER
     Route: 048
  6. ASPIRIN [Concomitant]
     Indication: BLOOD DISORDER
     Route: 048

REACTIONS (3)
  - CEREBRAL ISCHAEMIA [None]
  - HEADACHE [None]
  - PAIN IN EXTREMITY [None]
